FAERS Safety Report 6997647-5 (Version None)
Quarter: 2010Q3

REPORT INFORMATION
  Report Type: 
  Country: None (occurrence: None)
  Receive Date: 20100918
  Receipt Date: 20091117
  Transmission Date: 20110219
  Serious: No
  Sender: FDA-Public Use
  Company Number: US-WYE-H12201409

PATIENT
  Age: 17 Year
  Sex: Male
  Weight: 63.56 kg

DRUGS (1)
  1. ADVIL COLD AND SINUS [Suspect]

REACTIONS (3)
  - DYSPHAGIA [None]
  - OROPHARYNGEAL PAIN [None]
  - PRODUCT SIZE ISSUE [None]
